FAERS Safety Report 6386187-2 (Version None)
Quarter: 2009Q4

REPORT INFORMATION
  Report Type: 
  Country: None (occurrence: None)
  Receive Date: 20091002
  Receipt Date: 20081125
  Transmission Date: 20100525
  Serious: Yes (Other)
  Sender: FDA-Public Use
  Company Number: US-ASTRAZENECA-2008UW26450

PATIENT
  Age: 82 Year
  Sex: Female
  Weight: 54.4 kg

DRUGS (5)
  1. ARIMIDEX [Suspect]
     Indication: BREAST CANCER
     Route: 048
     Dates: start: 20010101
  2. LIPITOR [Concomitant]
  3. METFORMIN [Concomitant]
  4. ACIPHEX [Concomitant]
  5. ADVAIR DISKUS 100/50 [Concomitant]

REACTIONS (2)
  - BODY HEIGHT DECREASED [None]
  - HIP FRACTURE [None]
